FAERS Safety Report 19112278 (Version 2)
Quarter: 2021Q2

REPORT INFORMATION
  Report Type: Report from Study
  Country: MX (occurrence: MX)
  Receive Date: 20210409
  Receipt Date: 20210515
  Transmission Date: 20210717
  Serious: Yes (Death, Hospitalization, Other)
  Sender: FDA-Public Use
  Company Number: NVSC2021MX079031

PATIENT
  Age: 77 Year
  Sex: Female

DRUGS (1)
  1. REVOLADE [Suspect]
     Active Substance: ELTROMBOPAG OLAMINE
     Indication: PLATELET COUNT DECREASED
     Dosage: 50 MG, BID (MORNING AND AFTERNOON) (20 YEARS AGO)
     Route: 048
     Dates: start: 2001

REACTIONS (5)
  - Pneumonia bacterial [Fatal]
  - Influenza [Not Recovered/Not Resolved]
  - Lung disorder [Fatal]
  - Off label use [Unknown]
  - Cardiac failure [Not Recovered/Not Resolved]

NARRATIVE: CASE EVENT DATE: 2001
